FAERS Safety Report 7141144-3 (Version None)
Quarter: 2010Q4

REPORT INFORMATION
  Report Type: 
  Country: None (occurrence: None)
  Receive Date: 20101207
  Receipt Date: 20101022
  Transmission Date: 20110411
  Serious: No
  Sender: FDA-Public Use
  Company Number: US-TYCO HEALTHCARE/MALLINCKRODT-T201002175

PATIENT
  Age: 45 Year
  Sex: Female

DRUGS (1)
  1. EXALGO [Suspect]
     Dosage: UNK

REACTIONS (1)
  - VOMITING PROJECTILE [None]
